FAERS Safety Report 24865798 (Version 4)
Quarter: 2025Q1

REPORT INFORMATION
  Report Type: Report from Study
  Country: US (occurrence: US)
  Receive Date: 20250121
  Receipt Date: 20250326
  Transmission Date: 20250408
  Serious: Yes (Hospitalization)
  Sender: INSMED
  Company Number: US-INSMED, INC.-2024-03328-US

PATIENT
  Sex: Female

DRUGS (3)
  1. ARIKAYCE [Suspect]
     Active Substance: AMIKACIN
     Indication: Mycobacterium avium complex infection
     Dosage: 590 MILLIGRAM, QD
     Route: 055
     Dates: start: 20240802, end: 20240823
  2. ARIKAYCE [Suspect]
     Active Substance: AMIKACIN
     Dosage: 590 MILLIGRAM, QD
     Route: 055
     Dates: start: 20240826, end: 202408
  3. ARIKAYCE [Suspect]
     Active Substance: AMIKACIN
     Dosage: 590 MILLIGRAM, BIW, COUPLE TIMES A WEEK
     Route: 055
     Dates: start: 202408, end: 202409

REACTIONS (17)
  - Hospitalisation [Unknown]
  - COVID-19 [Not Recovered/Not Resolved]
  - Rehabilitation therapy [Unknown]
  - Hospice care [Unknown]
  - Respiratory syncytial virus infection [Not Recovered/Not Resolved]
  - Epistaxis [Not Recovered/Not Resolved]
  - Ear discomfort [Unknown]
  - Chest discomfort [Unknown]
  - Vomiting [Not Recovered/Not Resolved]
  - Diarrhoea [Unknown]
  - Tinnitus [Unknown]
  - Illness [Unknown]
  - Malaise [Unknown]
  - Dyspnoea [Unknown]
  - Haemoptysis [Unknown]
  - Therapy interrupted [Unknown]
  - Product dose omission issue [Unknown]

NARRATIVE: CASE EVENT DATE: 20240101
